FAERS Safety Report 8700100 (Version 4)
Quarter: 2014Q4

REPORT INFORMATION
  Report Type: Report from Study
  Country: JP (occurrence: JP)
  Receive Date: 20120802
  Receipt Date: 20141126
  Transmission Date: 20150529
  Serious: Yes (Hospitalization)
  Sender: FDA-Public Use
  Company Number: PHHY2012JP063255

PATIENT
  Age: 78 Year
  Sex: Male

DRUGS (20)
  1. TAFLUPROST [Concomitant]
     Active Substance: TAFLUPROST
     Indication: GLAUCOMA
     Dosage: UNK UKN, UNK
  2. ENALAPRIL MALEATE. [Concomitant]
     Active Substance: ENALAPRIL MALEATE
     Dosage: 2.5 MG, ONCE AFTER EVERY BREAKFAST
  3. ANTIBIOTICS-RESISTANT LACTIC ACID BACTERIAE [Concomitant]
     Active Substance: UNSPECIFIED INGREDIENT
     Dosage: 03 DF, THRICE AFTER EVERY MEAL
  4. LEVOFLOXACIN HEMIHYDRATE [Concomitant]
     Active Substance: LEVOFLOXACIN
     Indication: GLAUCOMA
     Dosage: UNK UKN, UNK
  5. DORZOLAMIDE HYDROCHLORIDE. [Concomitant]
     Active Substance: DORZOLAMIDE HYDROCHLORIDE
     Indication: GLAUCOMA
     Dosage: UNK UKN, UNK
  6. L-GLUTAMINE                             /NET/ [Concomitant]
     Dosage: 3PACKS THRICE AFTER EVERY MEAL
  7. ANTIHYPERTENSIVE DRUGS [Concomitant]
     Active Substance: UNSPECIFIED INGREDIENT
     Indication: HYPERTENSION
     Dosage: UNK UKN, UNK
  8. ATORVASTATIN [Concomitant]
     Active Substance: ATORVASTATIN
     Dosage: 5 MG, ONCE AFTER EVERY DINNER
  9. AMN107 [Suspect]
     Active Substance: NILOTINIB
     Dosage: 400 MG (RESUMED)
  10. LOSARTAN POTASSIUM. [Concomitant]
     Active Substance: LOSARTAN POTASSIUM
     Dosage: UNK UKN, UNK
  11. FLUOROMETHOLONE. [Concomitant]
     Active Substance: FLUOROMETHOLONE
     Indication: GLAUCOMA
     Dosage: UNK UKN, UNK
  12. ASPIRIN. [Concomitant]
     Active Substance: ASPIRIN
     Dosage: 01 DF, ONCE AFTER EVERY BREAKFAST
  13. YOKUKANSAN [Concomitant]
     Active Substance: HERBALS
     Dosage: 3PACKS THRICE AFTER EVERY MEAL
  14. AMLODIPINE BESILATE [Concomitant]
     Active Substance: AMLODIPINE BESYLATE
     Dosage: UNK UKN, UNK
  15. TIMOLOL MALEATE. [Concomitant]
     Active Substance: TIMOLOL MALEATE
     Indication: GLAUCOMA
     Dosage: UNK UKN, UNK
  16. CLOPIDOGREL [Concomitant]
     Active Substance: CLOPIDOGREL BISULFATE
     Dosage: 75 MG, ONCE AFTER EVERY BREAKFAST
  17. LANSOPRAZOLE. [Concomitant]
     Active Substance: LANSOPRAZOLE
     Dosage: 01 DF, ONCE AFTER EVERY DINNER
  18. AMN107 [Suspect]
     Active Substance: NILOTINIB
     Indication: CHRONIC MYELOID LEUKAEMIA
     Dosage: 800 MG, DAILY
     Route: 048
     Dates: start: 20090717, end: 20110910
  19. AMN107 [Suspect]
     Active Substance: NILOTINIB
     Dosage: 800 MG
     Dates: start: 20120302
  20. ALLOPURINOL. [Concomitant]
     Active Substance: ALLOPURINOL
     Dosage: UNK UKN, UNK

REACTIONS (14)
  - Bradycardia [Recovered/Resolved]
  - Blood lactate dehydrogenase increased [Unknown]
  - Mean cell volume increased [Unknown]
  - High density lipoprotein decreased [Unknown]
  - Brain natriuretic peptide increased [Unknown]
  - Red blood cell count decreased [Unknown]
  - Mean cell haemoglobin concentration decreased [Unknown]
  - Troponin T increased [Recovered/Resolved]
  - Rash [Recovering/Resolving]
  - Myocardial infarction [Recovered/Resolved]
  - Haemoglobin decreased [Unknown]
  - Loss of consciousness [Recovered/Resolved]
  - Dizziness [Unknown]
  - Blood pressure increased [Unknown]

NARRATIVE: CASE EVENT DATE: 201108
